FAERS Safety Report 4356076-3 (Version None)
Quarter: 2004Q2

REPORT INFORMATION
  Report Type: 
  Country: None (occurrence: None)
  Receive Date: 20040511
  Receipt Date: 20030519
  Transmission Date: 20050107
  Serious: No
  Sender: FDA-Public Use
  Company Number: US-BRISTOL-MYERS SQUIBB COMPANY-12279592

PATIENT
  Age: 42 Year
  Sex: Female

DRUGS (5)
  1. DOXORUBICIN HCL [Suspect]
     Indication: BREAST CANCER
     Dates: start: 20030328, end: 20030328
  2. CYCLOPHOSPHAMIDE [Suspect]
     Indication: BREAST CANCER
     Dates: start: 20030328, end: 20030328
  3. NEULASTA [Suspect]
     Indication: NEUTROPENIA
     Route: 058
     Dates: start: 20030329, end: 20030329
  4. GRANISETRON HCL [Suspect]
  5. DEXAMETHASONE [Suspect]

REACTIONS (1)
  - MIGRAINE [None]
